FAERS Safety Report 18378402 (Version 2)
Quarter: 2020Q4

REPORT INFORMATION
  Report Type: Spontaneous
  Country: US (occurrence: US)
  Receive Date: 20201013
  Receipt Date: 20201208
  Transmission Date: 20210114
  Serious: Yes (Disabling, Other)
  Sender: FDA-Public Use
  Company Number: US-PURDUE-USA-2020-0170206

PATIENT
  Sex: Female

DRUGS (51)
  1. DILAUDID [Suspect]
     Active Substance: HYDROMORPHONE HYDROCHLORIDE
     Indication: PAIN
     Dosage: 8 MG, UNK
     Route: 048
  2. BUPRENORPHINE TRANSDERMAL PATCH (SIMILAR TO NDA 21-306) [Suspect]
     Active Substance: BUPRENORPHINE
     Indication: PRODUCT USED FOR UNKNOWN INDICATION
     Route: 048
  3. TOPAMAX [Concomitant]
     Active Substance: TOPIRAMATE
     Dosage: 100MG
     Route: 048
     Dates: start: 20111128
  4. ALPRAZOLAM. [Concomitant]
     Active Substance: ALPRAZOLAM
     Dosage: 2MG
     Route: 048
     Dates: start: 20130215
  5. TOPIRAMATE. [Concomitant]
     Active Substance: TOPIRAMATE
     Indication: PRODUCT USED FOR UNKNOWN INDICATION
     Dosage: 100MG
     Dates: start: 20170519
  6. PHENAZOPYRIDINE. [Concomitant]
     Active Substance: PHENAZOPYRIDINE
     Indication: PRODUCT USED FOR UNKNOWN INDICATION
     Dosage: 200MG
     Route: 048
     Dates: start: 20170913
  7. FLUOXETINE [Concomitant]
     Active Substance: FLUOXETINE HYDROCHLORIDE
     Indication: PRODUCT USED FOR UNKNOWN INDICATION
     Dosage: 20MG
     Route: 048
     Dates: start: 20171209
  8. MELOXICAM. [Concomitant]
     Active Substance: MELOXICAM
     Indication: PRODUCT USED FOR UNKNOWN INDICATION
     Dosage: 7.5MG
     Dates: start: 20180208
  9. HYDROMORPHONE TABLETS [Suspect]
     Active Substance: HYDROMORPHONE
     Dosage: 8MG
     Route: 048
     Dates: start: 20130725
  10. METHADONE HCL [Concomitant]
     Active Substance: METHADONE HYDROCHLORIDE
     Dosage: 10MG
     Route: 048
     Dates: start: 20130616
  11. ALPRAZOLAM. [Concomitant]
     Active Substance: ALPRAZOLAM
     Dosage: 2MG
     Route: 048
     Dates: start: 20130608
  12. CEPHALEXIN                         /00145501/ [Concomitant]
     Active Substance: CEPHALEXIN
     Indication: PRODUCT USED FOR UNKNOWN INDICATION
     Dosage: 500MG
     Route: 048
     Dates: start: 20161010
  13. AUGMENTIN BD [Concomitant]
     Active Substance: AMOXICILLIN\CLAVULANIC ACID
     Indication: PRODUCT USED FOR UNKNOWN INDICATION
     Dosage: 875-125MG
     Dates: start: 20170913
  14. IBUPROFEN. [Concomitant]
     Active Substance: IBUPROFEN
     Indication: PRODUCT USED FOR UNKNOWN INDICATION
     Dosage: 800MG
     Dates: start: 20171113
  15. PAROXETINE HCL [Concomitant]
     Active Substance: PAROXETINE HYDROCHLORIDE
     Indication: PRODUCT USED FOR UNKNOWN INDICATION
     Dosage: 20MG
     Dates: start: 20180128
  16. OXYCODONE HYDROCHLORIDE (SIMILAR TO NDA 22-272) [Suspect]
     Active Substance: OXYCODONE HYDROCHLORIDE
     Indication: BREAKTHROUGH PAIN
     Dosage: 20 MG, UNK
     Route: 048
  17. OXYCODONE/ ACETAMINOPHEN TABLETS [Suspect]
     Active Substance: ACETAMINOPHEN\OXYCODONE HYDROCHLORIDE
     Indication: PRODUCT USED FOR UNKNOWN INDICATION
     Route: 048
  18. BENZONATATE. [Concomitant]
     Active Substance: BENZONATATE
     Indication: PRODUCT USED FOR UNKNOWN INDICATION
     Dosage: 100MG
     Route: 048
     Dates: start: 20171106
  19. TRAZODONE [Concomitant]
     Active Substance: TRAZODONE HYDROCHLORIDE
     Indication: PRODUCT USED FOR UNKNOWN INDICATION
     Dosage: 50MG
     Dates: start: 20171209
  20. METHADONE HCL [Concomitant]
     Active Substance: METHADONE HYDROCHLORIDE
     Indication: PRODUCT USED FOR UNKNOWN INDICATION
     Dosage: 5MG
     Route: 048
     Dates: start: 20100603
  21. TOPAMAX [Concomitant]
     Active Substance: TOPIRAMATE
     Dosage: 100MG
     Route: 048
     Dates: start: 20120706
  22. MUCINEX [Concomitant]
     Active Substance: GUAIFENESIN
     Indication: PRODUCT USED FOR UNKNOWN INDICATION
  23. MIRTAZAPINE. [Concomitant]
     Active Substance: MIRTAZAPINE
     Indication: PRODUCT USED FOR UNKNOWN INDICATION
     Dosage: 15MG
     Dates: start: 20180128
  24. ALPRAZOLAM. [Concomitant]
     Active Substance: ALPRAZOLAM
     Indication: PRODUCT USED FOR UNKNOWN INDICATION
     Dosage: 2MG
     Route: 048
     Dates: start: 20130118
  25. ALPRAZOLAM. [Concomitant]
     Active Substance: ALPRAZOLAM
     Dosage: 2MG
     Route: 048
     Dates: start: 20130315
  26. FENTANYL. [Concomitant]
     Active Substance: FENTANYL
     Indication: PRODUCT USED FOR UNKNOWN INDICATION
     Route: 065
  27. DURAGESIC MAT [Concomitant]
     Active Substance: FENTANYL
     Indication: PRODUCT USED FOR UNKNOWN INDICATION
  28. HYDROXYZINE PAM [Concomitant]
     Active Substance: HYDROXYZINE PAMOATE
     Indication: PRODUCT USED FOR UNKNOWN INDICATION
     Dosage: 25MG
     Route: 048
     Dates: start: 20170914
  29. SULFAMETHOXAZOLE [Concomitant]
     Active Substance: SULFAMETHOXAZOLE
     Indication: PRODUCT USED FOR UNKNOWN INDICATION
     Dosage: UNK
     Dates: start: 20171106
  30. FLUTICASONE PROPIONATE. [Concomitant]
     Active Substance: FLUTICASONE PROPIONATE
     Indication: PRODUCT USED FOR UNKNOWN INDICATION
     Dosage: 50MCG
     Dates: start: 20171106
  31. MUPIROCIN. [Concomitant]
     Active Substance: MUPIROCIN
     Indication: PRODUCT USED FOR UNKNOWN INDICATION
     Dosage: UNK
     Dates: start: 20190923
  32. HYDROCODONE BITARTRATE AND ACETAMINOPHEN [Suspect]
     Active Substance: ACETAMINOPHEN\HYDROCODONE BITARTRATE
     Indication: PRODUCT USED FOR UNKNOWN INDICATION
     Route: 048
  33. TOPAMAX [Concomitant]
     Active Substance: TOPIRAMATE
     Dosage: 100MG
     Route: 048
     Dates: start: 20120109
  34. AMOXICILINA                        /00249602/ [Concomitant]
     Active Substance: AMOXICILLIN
     Indication: PRODUCT USED FOR UNKNOWN INDICATION
     Dosage: 500MG
     Route: 048
     Dates: start: 20130610
  35. OMEPRAZOL                          /00661201/ [Concomitant]
     Active Substance: OMEPRAZOLE
     Indication: PRODUCT USED FOR UNKNOWN INDICATION
     Dosage: 20MG
     Dates: start: 20190923
  36. HYDROMORPHONE TABLETS [Suspect]
     Active Substance: HYDROMORPHONE
     Indication: PRODUCT USED FOR UNKNOWN INDICATION
     Dosage: 8MG
     Route: 048
     Dates: start: 20130712
  37. METHADONE HCL [Concomitant]
     Active Substance: METHADONE HYDROCHLORIDE
     Dosage: 10MG
     Route: 048
     Dates: start: 20130715
  38. TOPAMAX [Concomitant]
     Active Substance: TOPIRAMATE
     Dosage: 100MG
     Route: 048
     Dates: start: 20120823
  39. AMOXICILINA                        /00249602/ [Concomitant]
     Active Substance: AMOXICILLIN
     Dosage: 500MG
     Route: 048
     Dates: start: 20130716
  40. SUMATRIPTAN. [Concomitant]
     Active Substance: SUMATRIPTAN
     Indication: PRODUCT USED FOR UNKNOWN INDICATION
     Route: 048
  41. DEXTROMETHORPHAN [Concomitant]
     Active Substance: DEXTROMETHORPHAN
     Indication: PRODUCT USED FOR UNKNOWN INDICATION
  42. ZOLPIDEM [Concomitant]
     Active Substance: ZOLPIDEM TARTRATE
     Indication: PRODUCT USED FOR UNKNOWN INDICATION
     Dosage: 5MG
     Dates: start: 20180702
  43. GAVILYTE N [Concomitant]
     Indication: PRODUCT USED FOR UNKNOWN INDICATION
  44. OXYCONTIN [Suspect]
     Active Substance: OXYCODONE HYDROCHLORIDE
     Indication: PAIN
     Dosage: 40 MG, UNK
     Route: 048
  45. HYDROMORPHONE TABLETS [Suspect]
     Active Substance: HYDROMORPHONE
     Dosage: 8MG
     Route: 048
     Dates: start: 20130807
  46. TOPAMAX [Concomitant]
     Active Substance: TOPIRAMATE
     Indication: PRODUCT USED FOR UNKNOWN INDICATION
     Dosage: 100MG
     Route: 048
     Dates: start: 20111003
  47. TOPAMAX [Concomitant]
     Active Substance: TOPIRAMATE
     Dosage: 100MG
     Route: 048
     Dates: start: 20120508
  48. ALPRAZOLAM. [Concomitant]
     Active Substance: ALPRAZOLAM
     Dosage: 2MG
     Route: 048
     Dates: start: 20130413
  49. ALPRAZOLAM. [Concomitant]
     Active Substance: ALPRAZOLAM
     Dosage: 2MG
     Route: 048
     Dates: start: 20130511
  50. CLONAZEPAM. [Concomitant]
     Active Substance: CLONAZEPAM
     Indication: PRODUCT USED FOR UNKNOWN INDICATION
     Dosage: 0.5MG
     Route: 048
     Dates: start: 20170703
  51. ONDANSETRON [Concomitant]
     Active Substance: ONDANSETRON
     Indication: PRODUCT USED FOR UNKNOWN INDICATION
     Dosage: 4MG
     Dates: start: 20190923

REACTIONS (9)
  - Depression [Unknown]
  - Panic attack [Unknown]
  - Anxiety [Unknown]
  - Suicidal ideation [Unknown]
  - Unevaluable event [Unknown]
  - Drug abuse [Unknown]
  - Dementia [Unknown]
  - Drug tolerance [Unknown]
  - Drug dependence [Unknown]
